FAERS Safety Report 11823642 (Version 4)
Quarter: 2016Q1

REPORT INFORMATION
  Report Type: Report from Study
  Country: US (occurrence: US)
  Receive Date: 20151210
  Receipt Date: 20160209
  Transmission Date: 20160525
  Serious: Yes (Other)
  Sender: FDA-Public Use
  Company Number: US-UCBSA-2015039255

PATIENT
  Sex: Female

DRUGS (5)
  1. LEVETIRACETAM. [Suspect]
     Active Substance: LEVETIRACETAM
     Dosage: UNK
     Dates: start: 201511
  2. LEVETIRACETAM. [Suspect]
     Active Substance: LEVETIRACETAM
     Dosage: 300 MG, 2X/DAY (BID)
     Dates: start: 2015
  3. LEVETIRACETAM. [Suspect]
     Active Substance: LEVETIRACETAM
     Indication: SEIZURE
     Dosage: UNK
     Dates: start: 2015, end: 2015
  4. LEVETIRACETAM. [Suspect]
     Active Substance: LEVETIRACETAM
     Dosage: 1000 MG DAILY (5 ML TWICE A DAY)
     Dates: start: 2016
  5. LEVETIRACETAM. [Suspect]
     Active Substance: LEVETIRACETAM
     Dosage: DOSE INCREASED
     Dates: start: 2015, end: 201511

REACTIONS (13)
  - Muscle twitching [Unknown]
  - Emotional disorder [Unknown]
  - Petit mal epilepsy [Unknown]
  - Aggression [Unknown]
  - Mood altered [Unknown]
  - Memory impairment [Unknown]
  - Atonic seizures [Unknown]
  - Blood glucose decreased [Unknown]
  - Seizure [Unknown]
  - Generalised tonic-clonic seizure [Unknown]
  - Sleep disorder [Unknown]
  - Partial seizures [Unknown]
  - Decreased appetite [Unknown]

NARRATIVE: CASE EVENT DATE: 2015
